FAERS Safety Report 7689833-6 (Version None)
Quarter: 2011Q3

REPORT INFORMATION
  Report Type: 
  Country: None (occurrence: None)
  Receive Date: 20110818
  Receipt Date: 20110812
  Transmission Date: 20111222
  Serious: Yes (Hospitalization, Other)
  Sender: FDA-Public Use
  Company Number: US-BIOGENIDEC-2011BI030733

PATIENT
  Age: 46 Year
  Sex: Female

DRUGS (10)
  1. LUNESTA [Concomitant]
     Indication: INSOMNIA
     Route: 048
  2. MULTI-VITAMIN [Concomitant]
  3. MECLIZINE [Concomitant]
     Route: 048
  4. EFFEXOR [Concomitant]
     Route: 048
  5. BACLOFEN [Concomitant]
     Indication: MUSCLE SPASTICITY
     Route: 048
  6. OXYCODONE HCL [Concomitant]
     Route: 048
  7. NEXIUM [Concomitant]
  8. COUMADIN [Concomitant]
     Route: 048
  9. VALIUM [Concomitant]
     Route: 048
  10. TYSABRI [Suspect]
     Indication: MULTIPLE SCLEROSIS
     Route: 042
     Dates: start: 20090713

REACTIONS (1)
  - OVERDOSE [None]
